FAERS Safety Report 15554117 (Version 1)
Quarter: 2018Q4

REPORT INFORMATION
  Report Type: Spontaneous
  Country: US (occurrence: US)
  Receive Date: 20181025
  Receipt Date: 20181025
  Transmission Date: 20190205
  Serious: Yes (Other)
  Sender: FDA-Public Use
  Company Number: None

PATIENT
  Sex: Female

DRUGS (2)
  1. MARCAINE SPINAL NDC [Concomitant]
     Dates: start: 20181024, end: 20181024
  2. MARCAINE SPINAL [Suspect]
     Active Substance: BUPIVACAINE HYDROCHLORIDE
     Indication: UTERINE DILATION AND CURETTAGE
     Dosage: ?          OTHER FREQUENCY:ONCE;?
     Route: 024
     Dates: start: 20181024, end: 20181024

REACTIONS (5)
  - Product quality issue [None]
  - Screaming [None]
  - Drug ineffective [None]
  - Procedural pain [None]
  - Therapeutic response shortened [None]

NARRATIVE: CASE EVENT DATE: 20181024
